FAERS Safety Report 6366439-2 (Version None)
Quarter: 2009Q3

REPORT INFORMATION
  Report Type: 
  Country: None (occurrence: None)
  Receive Date: 20090921
  Receipt Date: 20090908
  Transmission Date: 20100115
  Serious: Yes (Disabling)
  Sender: FDA-Public Use
  Company Number: GB-ROCHE-655302

PATIENT
  Age: 79 Year
  Sex: Male

DRUGS (3)
  1. TAMIFLU [Suspect]
     Indication: DRUG USE FOR UNKNOWN INDICATION
     Route: 065
     Dates: start: 20090728, end: 20090802
  2. BENYLIN DRY COUGH LINCTUS [Concomitant]
  3. OLBAS OIL [Concomitant]

REACTIONS (1)
  - BLOOD SODIUM ABNORMAL [None]
